FAERS Safety Report 4292194-6 (Version None)
Quarter: 2004Q1

REPORT INFORMATION
  Report Type: 
  Country: None (occurrence: None)
  Receive Date: 20040126
  Receipt Date: 20030911
  Transmission Date: 20041129
  Serious: No
  Sender: FDA-Public Use
  Company Number: USA030742072

PATIENT
  Age: 82 Year
  Sex: Female
  Weight: 56 kg

DRUGS (2)
  1. FORTEO [Suspect]
     Indication: OSTEOPOROSIS
     Dosage: 20 UG/ DAY
     Dates: start: 20030505
  2. FOSAMAX [Concomitant]

REACTIONS (4)
  - INSOMNIA [None]
  - ONYCHORRHEXIS [None]
  - SLEEP TALKING [None]
  - SOMNOLENCE [None]
